FAERS Safety Report 12583387 (Version 1)
Quarter: 2016Q3

REPORT INFORMATION
  Report Type: Spontaneous
  Country: US (occurrence: US)
  Receive Date: 20160722
  Receipt Date: 20160722
  Transmission Date: 20161109
  Serious: Yes (Other)
  Sender: FDA-Public Use
  Company Number: US-LUNDBECK-DKLU2016605

PATIENT
  Sex: Male

DRUGS (1)
  1. NORTHERA [Suspect]
     Active Substance: DROXIDOPA
     Indication: PRODUCT USED FOR UNKNOWN INDICATION
     Route: 065
     Dates: start: 20160512, end: 20160705

REACTIONS (5)
  - Loss of consciousness [Unknown]
  - Abdominal discomfort [Unknown]
  - Fatigue [Unknown]
  - Malaise [Unknown]
  - Blood pressure inadequately controlled [Unknown]
